FAERS Safety Report 20952251 (Version 12)
Quarter: 2024Q3

REPORT INFORMATION
  Report Type: Spontaneous
  Country: IN (occurrence: IN)
  Receive Date: 20220613
  Receipt Date: 20240918
  Transmission Date: 20241017
  Serious: Yes (Other)
  Sender: PFIZER
  Company Number: IN-PFIZER INC-202200819586

PATIENT
  Age: 51 Year
  Sex: Female

DRUGS (5)
  1. PALBOCICLIB [Suspect]
     Active Substance: PALBOCICLIB
     Indication: Breast cancer metastatic
     Dosage: 125 MG, CYCLIC (ONCE DAILY FOR 21 DAYS , THEN A GAP OF 7 DAYS)
     Route: 048
     Dates: start: 20210916
  2. FULVESTRANT [Suspect]
     Active Substance: FULVESTRANT
     Dosage: 500MG DEEP 1M (250MG IN BOTH BUTTOCKS) EVERY 4 WEEKLY
     Route: 030
  3. FEMARA [Concomitant]
     Active Substance: LETROZOLE
     Dosage: 2.5 MG, 1X/DAY
  4. CALCIUM CARBONATE\CHOLECALCIFEROL [Concomitant]
     Active Substance: CALCIUM CARBONATE\CHOLECALCIFEROL
     Dosage: 1 DF, 1X/DAY
  5. ALENDRONIC ACID [Concomitant]
     Active Substance: ALENDRONIC ACID
     Dosage: 70 MG, WEEKLY(EMPTY STOMACH , MORNING , GLASS FULL WATER, UPRIGHT 1 HOUR)

REACTIONS (18)
  - Neutrophil count decreased [Unknown]
  - Body mass index increased [Unknown]
  - Traumatic fracture [Unknown]
  - Platelet count decreased [Unknown]
  - White blood cell count decreased [Unknown]
  - Haemoglobin decreased [Unknown]
  - Red cell distribution width abnormal [Unknown]
  - Monocyte morphology abnormal [Unknown]
  - Red blood cell count decreased [Unknown]
  - Haematocrit decreased [Unknown]
  - Goitre [Unknown]
  - Hepatic steatosis [Unknown]
  - Mean platelet volume increased [Unknown]
  - Monocyte percentage increased [Unknown]
  - Basophil percentage increased [Unknown]
  - Lymphocyte count decreased [Unknown]
  - Neoplasm progression [Unknown]
  - Injection site pain [Unknown]

NARRATIVE: CASE EVENT DATE: 20211011
